FAERS Safety Report 5262626-5 (Version None)
Quarter: 2007Q1

REPORT INFORMATION
  Report Type: 
  Country: None (occurrence: None)
  Receive Date: 20070307
  Receipt Date: 20070228
  Transmission Date: 20070707
  Serious: Yes (Other)
  Sender: FDA-Public Use
  Company Number: 151609USA

PATIENT
  Age: 6 Year
  Sex: Male

DRUGS (3)
  1. PIMOZIDE TABLETS (PIMOZIDE) [Suspect]
     Indication: AUTISM
     Dosage: 0.4MG (0.2 MG, 2  IN 1 D), ORAL
     Route: 048
     Dates: start: 20060324, end: 20061215
  2. LACTOSE [Concomitant]
  3. CORN STARCH [Concomitant]

REACTIONS (3)
  - GENERALISED OEDEMA [None]
  - HAEMATURIA [None]
  - NEPHRITIS [None]
